FAERS Safety Report 14008094 (Version 2)
Quarter: 2017Q4

REPORT INFORMATION
  Report Type: Spontaneous
  Country: FR (occurrence: FR)
  Receive Date: 20170925
  Receipt Date: 20171013
  Transmission Date: 20180321
  Serious: Yes (Other)
  Sender: FDA-Public Use
  Company Number: FR-SA-2017SA171932

PATIENT
  Age: 41 Year
  Sex: Female

DRUGS (3)
  1. LYRICA [Concomitant]
     Active Substance: PREGABALIN
     Indication: PAIN
  2. AUBAGIO [Suspect]
     Active Substance: TERIFLUNOMIDE
     Indication: RELAPSING-REMITTING MULTIPLE SCLEROSIS
     Route: 048
     Dates: start: 201702
  3. EFFEXOR [Concomitant]
     Active Substance: VENLAFAXINE HYDROCHLORIDE
     Indication: DEPRESSION

REACTIONS (13)
  - Skin infection [Recovering/Resolving]
  - Rash maculo-papular [Unknown]
  - Pruritus [Unknown]
  - Dyspepsia [Recovering/Resolving]
  - Acne [Unknown]
  - Genital infection [Recovering/Resolving]
  - Alopecia [Recovering/Resolving]
  - Tooth abscess [Unknown]
  - Urinary tract infection [Recovering/Resolving]
  - Vaginal infection [Unknown]
  - Burning sensation [Unknown]
  - Erythema [Unknown]
  - Diarrhoea [Unknown]

NARRATIVE: CASE EVENT DATE: 2017
